FAERS Safety Report 21853912 (Version 2)
Quarter: 2023Q1

REPORT INFORMATION
  Report Type: Spontaneous
  Country: KZ (occurrence: KZ)
  Receive Date: 20230112
  Receipt Date: 20230302
  Transmission Date: 20230417
  Serious: Yes (Hospitalization, Other)
  Sender: FDA-Public Use
  Company Number: KZ-002147023-NVSC2023KZ005578

PATIENT
  Age: 0 Year
  Sex: Female
  Weight: 1.8 kg

DRUGS (7)
  1. AZITHROMYCIN [Suspect]
     Active Substance: AZITHROMYCIN
     Indication: Foetal exposure during pregnancy
     Dosage: MATERNAL EXPOSURE DURING PREGNANCY: UNK
     Route: 064
  2. SIRTURO [Suspect]
     Active Substance: BEDAQUILINE FUMARATE
     Indication: Foetal exposure during pregnancy
     Dosage: MATERNAL EXPOSURE DURING PREGNANCY: 400 MG FOR 14 DAYS
     Route: 064
     Dates: start: 20180620
  3. SIRTURO [Suspect]
     Active Substance: BEDAQUILINE FUMARATE
     Dosage: MATERNAL EXPOSURE DURING PREGNANCY: FOLLOWED BY 200 MG 3 TIMES A WEEK
     Route: 064
  4. DELAMANID [Suspect]
     Active Substance: DELAMANID
     Indication: Foetal exposure during pregnancy
     Dosage: MATERNAL EXPOSURE DURING PREGNANCY: 200 MG
     Route: 064
     Dates: start: 20180620
  5. LINEZOLID [Suspect]
     Active Substance: LINEZOLID
     Indication: Foetal exposure during pregnancy
     Dosage: MATERNAL EXPOSURE DURING PREGNANCY: 300 MG, QD
     Route: 064
     Dates: start: 20180620
  6. CLOFAZIMINE [Suspect]
     Active Substance: CLOFAZIMINE
     Indication: Foetal exposure during pregnancy
     Dosage: MATERNAL EXPOSURE DURING PREGNANCY: 200 MG
     Route: 064
     Dates: start: 20180620
  7. CYCLOSERINE [Suspect]
     Active Substance: CYCLOSERINE
     Indication: Foetal exposure during pregnancy
     Dosage: MATERNAL EXPOSURE DURING PREGNANCY: 750 MG
     Route: 064
     Dates: start: 20180620

REACTIONS (3)
  - Low birth weight baby [Unknown]
  - Premature baby [Unknown]
  - Foetal exposure during pregnancy [Unknown]

NARRATIVE: CASE EVENT DATE: 20180727
